FAERS Safety Report 6450509-4 (Version None)
Quarter: 2009Q4

REPORT INFORMATION
  Report Type: 
  Country: None (occurrence: None)
  Receive Date: 20091123
  Receipt Date: 20091110
  Transmission Date: 20100525
  Serious: No
  Sender: FDA-Public Use
  Company Number: PHEH2009US14442

PATIENT
  Sex: Female
  Weight: 101.13 kg

DRUGS (5)
  1. AFINITOR [Suspect]
     Indication: RENAL CELL CARCINOMA
     Dosage: 10 MG, QD
  2. AFINITOR [Suspect]
     Dosage: 10 MG, UNK
     Dates: start: 20090801
  3. ANTIHYPERTENSIVE DRUGS [Concomitant]
     Dosage: UNK, UNK
  4. TRAVOPROST [Concomitant]
     Indication: GLAUCOMA
  5. COSOPT [Concomitant]

REACTIONS (3)
  - ANAEMIA [None]
  - DECREASED APPETITE [None]
  - ORAL DISORDER [None]
